FAERS Safety Report 7675812-1 (Version None)
Quarter: 2011Q3

REPORT INFORMATION
  Report Type: 
  Country: None (occurrence: None)
  Receive Date: 20110810
  Receipt Date: 20110801
  Transmission Date: 20111222
  Serious: Yes (Other)
  Sender: FDA-Public Use
  Company Number: US-ASTRAZENECA-2011SE18014

PATIENT
  Age: 80 Year
  Sex: Female
  Weight: 64.9 kg

DRUGS (8)
  1. LISINOPRIL [Concomitant]
  2. CLONIDINE [Concomitant]
     Dosage: DAILY
  3. LOVASTATIN [Concomitant]
  4. MIRALAX [Concomitant]
  5. AMLODIPINE [Concomitant]
  6. LASIX [Concomitant]
  7. ARIMIDEX [Suspect]
     Indication: BREAST CANCER
     Route: 048
     Dates: start: 20110101
  8. HYDROCHLOROTHIAZIDE [Concomitant]

REACTIONS (9)
  - BREAST CALCIFICATIONS [None]
  - FIBROADENOMA OF BREAST [None]
  - METASTASES TO LYMPH NODES [None]
  - BLOOD PRESSURE INCREASED [None]
  - BREAST OPERATION [None]
  - ARTHRALGIA [None]
  - LYMPHOEDEMA [None]
  - BREAST CANCER IN SITU [None]
  - NEOPLASM MALIGNANT [None]
